FAERS Safety Report 5168215-5 (Version None)
Quarter: 2006Q4

REPORT INFORMATION
  Report Type: 
  Country: None (occurrence: None)
  Receive Date: 20061208
  Receipt Date: 20061206
  Transmission Date: 20070319
  Serious: Yes (Hospitalization)
  Sender: FDA-Public Use
  Company Number: US-GLAXOSMITHKLINE-A0630615A

PATIENT
  Age: 87 Year
  Sex: Male

DRUGS (12)
  1. AVANDIA [Suspect]
     Dosage: 8MG PER DAY
     Route: 048
  2. METFORMIN [Concomitant]
  3. GLIPIZIDE [Concomitant]
  4. LIPITOR [Concomitant]
  5. LISINOPRIL [Concomitant]
  6. VITAMIN D [Concomitant]
  7. CALCIUM [Concomitant]
  8. ASCORBIC ACID [Concomitant]
  9. VICODIN [Concomitant]
  10. FERROUS SULFATE TAB [Concomitant]
  11. GLUCOSAMINE CHONDROITIN [Concomitant]
  12. VITAMIN CAP [Concomitant]

REACTIONS (2)
  - FRACTURE [None]
  - WEIGHT INCREASED [None]
